FAERS Safety Report 14063259 (Version 1)
Quarter: 2017Q4

REPORT INFORMATION
  Report Type: Spontaneous
  Country: JP (occurrence: JP)
  Receive Date: 20171009
  Receipt Date: 20171009
  Transmission Date: 20180321
  Serious: Yes (Other)
  Sender: FDA-Public Use
  Company Number: JP-MYLANLABS-2017M1062293

PATIENT
  Sex: Female

DRUGS (2)
  1. BEVACIZUMAB. [Concomitant]
     Active Substance: BEVACIZUMAB
     Indication: BREAST CANCER METASTATIC
     Dosage: 10 MG/KG ON DAYS 1 AND 15, EVERY 4 WEEKS
     Route: 065
  2. PACLITAXEL. [Suspect]
     Active Substance: PACLITAXEL
     Indication: BREAST CANCER METASTATIC
     Dosage: 90 MG/M2 ON DAYS 1, 8, AND 15, EVERY 4 WEEKS
     Route: 065

REACTIONS (1)
  - Cystoid macular oedema [Recovered/Resolved]
